FAERS Safety Report 9944147 (Version 1)
Quarter: 2014Q1

REPORT INFORMATION
  Report Type: Report from Study
  Country: US (occurrence: US)
  Receive Date: 20140303
  Receipt Date: 20140303
  Transmission Date: 20141002
  Serious: No
  Sender: FDA-Public Use
  Company Number: US-ABBVIE-13P-163-1046867-00

PATIENT
  Age: 27 Year
  Sex: Female
  Weight: 56.3 kg

DRUGS (9)
  1. HUMIRA [Suspect]
     Indication: ANKYLOSING SPONDYLITIS
     Dates: start: 20120528, end: 20120528
  2. HUMIRA [Suspect]
     Dates: start: 20121011, end: 20121011
  3. PRENATAL VITAMINS [Concomitant]
     Indication: PRODUCT USED FOR UNKNOWN INDICATION
     Route: 048
     Dates: start: 20120408, end: 20130117
  4. FISH OIL [Concomitant]
     Indication: PRODUCT USED FOR UNKNOWN INDICATION
     Route: 048
     Dates: start: 20120506, end: 20120603
  5. PREDNISONE [Concomitant]
     Indication: ANKYLOSING SPONDYLITIS
     Route: 048
     Dates: start: 20121216, end: 20121216
  6. PREDNISONE [Concomitant]
     Indication: PAIN
     Route: 048
     Dates: start: 20121014, end: 20121014
  7. TYLENOL [Concomitant]
     Indication: BACK PAIN
     Route: 048
     Dates: start: 20121225, end: 20121228
  8. TUMS [Concomitant]
     Indication: DYSPEPSIA
     Dates: start: 20120812, end: 20130117
  9. COFFEE [Concomitant]
     Dates: start: 20120408, end: 20120520

REACTIONS (2)
  - Back pain [Recovered/Resolved]
  - Dyspepsia [Recovered/Resolved]
